FAERS Safety Report 17437396 (Version 4)
Quarter: 2021Q1

REPORT INFORMATION
  Report Type: Report from Study
  Country: None (occurrence: DE)
  Receive Date: 20200219
  Receipt Date: 20210209
  Transmission Date: 20210419
  Serious: Yes (Other)
  Sender: FDA-Public Use
  Company Number: DE-ABBVIE-20K-062-3282520-00

PATIENT
  Age: 60 Year
  Sex: Male
  Weight: 113 kg

DRUGS (15)
  1. CANDESARTAN. [Concomitant]
     Active Substance: CANDESARTAN
     Indication: HYPERTENSION
     Route: 048
     Dates: start: 20190701
  2. TORASEMID [Concomitant]
     Active Substance: TORSEMIDE
     Indication: HYPERTENSION
     Route: 048
     Dates: start: 20190701
  3. LOTRICOMB [Concomitant]
     Active Substance: BETAMETHASONE DIPROPIONATE\CLOTRIMAZOLE
     Dosage: 10 MG; TOPIC/SKIN/DERMAL SPRAY
     Route: 061
     Dates: start: 20190801
  4. AMLODIPIN [Concomitant]
     Active Substance: AMLODIPINE BESYLATE
     Route: 048
     Dates: start: 20200511, end: 20200531
  5. ELIQUIS [Concomitant]
     Active Substance: APIXABAN
     Indication: ATRIAL FIBRILLATION
     Route: 048
     Dates: start: 20161201
  6. NEBIVOLOL. [Concomitant]
     Active Substance: NEBIVOLOL
     Indication: HYPERTENSION
     Route: 048
     Dates: start: 20110101
  7. AMLODIPIN [Concomitant]
     Active Substance: AMLODIPINE BESYLATE
     Indication: HYPERTENSION
     Route: 048
     Dates: start: 20160101, end: 20200510
  8. FOLIC ACID. [Concomitant]
     Active Substance: FOLIC ACID
     Indication: POLYNEUROPATHY
     Route: 048
     Dates: start: 20170901
  9. SKYRIZI [Suspect]
     Active Substance: RISANKIZUMAB-RZAA
     Indication: PSORIASIS
     Route: 058
     Dates: start: 20191024, end: 20200506
  10. ALLOPURINOL. [Concomitant]
     Active Substance: ALLOPURINOL
     Indication: HYPERURICAEMIA
     Route: 048
     Dates: start: 20090101
  11. LOTRICOMB [Concomitant]
     Active Substance: BETAMETHASONE DIPROPIONATE\CLOTRIMAZOLE
     Indication: PSORIASIS
     Dosage: 10 MG; TOPIC/SKIN/DERMAL SPRAY
     Route: 061
     Dates: start: 201902, end: 2019
  12. ENSTILAR [Concomitant]
     Active Substance: BETAMETHASONE DIPROPIONATE\CALCIPOTRIENE HYDRATE
     Dosage: FOAM; 1 APPLICATION, TOPIC/SKIN/DERMAL SPRAY
     Route: 061
     Dates: start: 20201101
  13. IODIDE [Concomitant]
     Active Substance: IODINE
     Indication: HYPOTHYROIDISM
     Route: 048
     Dates: start: 20160601
  14. VITAMIN B12 [Concomitant]
     Active Substance: CYANOCOBALAMIN
     Indication: POLYNEUROPATHY
     Route: 058
     Dates: start: 20170901
  15. ENSTILAR [Concomitant]
     Active Substance: BETAMETHASONE DIPROPIONATE\CALCIPOTRIENE HYDRATE
     Indication: PSORIASIS
     Dosage: 50 UG/G, FOAM, TOPIC/SKIN/DERMAL SPRAY
     Route: 061
     Dates: start: 20190501

REACTIONS (8)
  - Wound [Recovering/Resolving]
  - Nasopharyngitis [Recovered/Resolved]
  - Squamous cell carcinoma [Recovered/Resolved]
  - Actinic keratosis [Recovered/Resolved]
  - Skin plaque [Unknown]
  - Rhinitis [Not Recovered/Not Resolved]
  - Eosinophil count increased [Unknown]
  - Erythema [Unknown]

NARRATIVE: CASE EVENT DATE: 20191202
